FAERS Safety Report 8395702-9 (Version None)
Quarter: 2012Q1

REPORT INFORMATION
  Report Type: 
  Country: None (occurrence: None)
  Receive Date: 20120323
  Receipt Date: 20110908
  Transmission Date: 20120608
  Serious: Yes (Hospitalization, Other)
  Sender: FDA-Public Use
  Company Number: 163-21880-11033568

PATIENT
  Age: 71 Year
  Sex: Female
  Weight: 89.8122 kg

DRUGS (22)
  1. LANTUS [Concomitant]
  2. DECADRON [Concomitant]
  3. TOPROL-XL [Concomitant]
  4. LASIX (FUROSMIDE) [Concomitant]
  5. ACETAMINOPHEN [Concomitant]
  6. POTASSIUM CHLORIDE [Concomitant]
  7. VITAMIN B12 [Concomitant]
  8. ALLOPURINOL [Concomitant]
  9. SYNTHROID [Concomitant]
  10. LISINOPRIL [Concomitant]
  11. XALATAN [Concomitant]
  12. VERAPAMIL [Concomitant]
  13. HUMALOG [Concomitant]
  14. REVLIMID [Suspect]
     Indication: MULTIPLE MYELOMA
     Dosage: 10 MG, 1 IN 1 D, PO ; 5 MG, 1 IN 2 D, PO ; 10 MG, 1 IN 1 D, PO
     Route: 048
     Dates: start: 20110316, end: 20110330
  15. REVLIMID [Suspect]
     Indication: MULTIPLE MYELOMA
     Dosage: 10 MG, 1 IN 1 D, PO ; 5 MG, 1 IN 2 D, PO ; 10 MG, 1 IN 1 D, PO
     Route: 048
     Dates: start: 20110411, end: 20110516
  16. REVLIMID [Suspect]
     Indication: MULTIPLE MYELOMA
     Dosage: 10 MG, 1 IN 1 D, PO ; 5 MG, 1 IN 2 D, PO ; 10 MG, 1 IN 1 D, PO
     Route: 048
     Dates: start: 20110715, end: 20110720
  17. INSULIN (INSULIN) [Concomitant]
  18. CALCIUM WITH VITAMIN D(CALCIUM WITH VITAMIN D) [Concomitant]
  19. CENTRUM SILVER (CENTRUM SILVER [Concomitant]
  20. CLARITIN [Concomitant]
  21. OXYGEN (OXYGEN) [Concomitant]
  22. FUROSEMIDE [Concomitant]

REACTIONS (4)
  - RASH PRURITIC [None]
  - PYREXIA [None]
  - CARDIAC FAILURE CONGESTIVE [None]
  - MUSCLE SPASMS [None]
